FAERS Safety Report 7395416-8 (Version None)
Quarter: 2011Q2

REPORT INFORMATION
  Report Type: 
  Country: None (occurrence: None)
  Receive Date: 20110405
  Receipt Date: 20110323
  Transmission Date: 20111010
  Serious: Yes (Other)
  Sender: FDA-Public Use
  Company Number: US-BAYER-2011-024884

PATIENT
  Sex: Female
  Weight: 113 kg

DRUGS (2)
  1. SYNTHROID [Concomitant]
  2. ONE A DAY WOMEN'S ACTIVE METABOLISM [Suspect]
     Indication: VITAMIN SUPPLEMENTATION
     Dosage: 1 DF, QD
     Route: 048
     Dates: end: 20110101

REACTIONS (3)
  - MENTAL IMPAIRMENT [None]
  - DIZZINESS [None]
  - LOSS OF CONSCIOUSNESS [None]
